FAERS Safety Report 13661168 (Version 1)
Quarter: 2017Q2

REPORT INFORMATION
  Report Type: Report from Study
  Country: US (occurrence: US)
  Receive Date: 20170616
  Receipt Date: 20170616
  Transmission Date: 20170830
  Serious: No
  Sender: FDA-Public Use
  Company Number: US-US WORLDMEDS, LLC-USW201703-000481

PATIENT
  Sex: Female
  Weight: 79.37 kg

DRUGS (3)
  1. ROPINIROLE. [Concomitant]
     Active Substance: ROPINIROLE
  2. APOKYN [Suspect]
     Active Substance: APOMORPHINE HYDROCHLORIDE
     Indication: PARKINSON^S DISEASE
     Route: 058
     Dates: start: 20170112
  3. TOPIRAMATE. [Concomitant]
     Active Substance: TOPIRAMATE

REACTIONS (2)
  - Fatigue [Recovered/Resolved]
  - Somnolence [Recovered/Resolved]
